FAERS Safety Report 16033263 (Version 1)
Quarter: 2019Q1

REPORT INFORMATION
  Report Type: Spontaneous
  Country: FR (occurrence: FR)
  Receive Date: 20190305
  Receipt Date: 20190305
  Transmission Date: 20190418
  Serious: Yes (Hospitalization)
  Sender: FDA-Public Use
  Company Number: FR-SUN PHARMACEUTICAL INDUSTRIES LTD-2019RR-200650

PATIENT
  Age: 33 Year
  Sex: Male

DRUGS (4)
  1. CORTANCYL [Suspect]
     Active Substance: PREDNISONE
     Indication: POLYCHONDRITIS
     Dosage: 30 MILLIGRAM
     Route: 048
     Dates: start: 201810
  2. ROACTEMRA [Suspect]
     Active Substance: TOCILIZUMAB
     Indication: POLYCHONDRITIS
     Dosage: 480 MILLIGRAM, MONTHLY
     Route: 065
     Dates: start: 20181025
  3. METOJECT [Suspect]
     Active Substance: METHOTREXATE SODIUM
     Indication: POLYCHONDRITIS
     Dosage: 25 MILLIGRAM, WEEKLY
     Route: 058
     Dates: start: 201810
  4. RISPERIDONE. [Suspect]
     Active Substance: RISPERIDONE
     Indication: AUTISM SPECTRUM DISORDER
     Dosage: 2 MILLIGRAM, DAILY
     Route: 048

REACTIONS (1)
  - Generalised tonic-clonic seizure [Recovered/Resolved]

NARRATIVE: CASE EVENT DATE: 20181129
